FAERS Safety Report 9714349 (Version 2)
Quarter: 2014Q1

REPORT INFORMATION
  Report Type: Spontaneous
  Country: FR (occurrence: FR)
  Receive Date: 20131126
  Receipt Date: 20140103
  Transmission Date: 20141002
  Serious: Yes (Hospitalization)
  Sender: FDA-Public Use
  Company Number: FR-PFIZER INC-2013332293

PATIENT
  Age: 15 Year
  Sex: Male
  Weight: 29.4 kg

DRUGS (3)
  1. GENOTONORM [Suspect]
     Dosage: 0.8 MG, 1X/DAY
     Route: 058
     Dates: start: 20110905, end: 20120227
  2. GENOTONORM [Suspect]
     Dosage: 1 MG, 1X/DAY
     Route: 058
     Dates: start: 20120227, end: 20120821
  3. GENOTONORM [Suspect]
     Dosage: 1.1 MG, 1X/DAY
     Route: 058
     Dates: start: 20120821, end: 20130205

REACTIONS (1)
  - Epiphysiolysis [Recovered/Resolved]
